FAERS Safety Report 21033321 (Version 1)
Quarter: 2022Q3

REPORT INFORMATION
  Report Type: Spontaneous
  Country: JP (occurrence: JP)
  Receive Date: 20220701
  Receipt Date: 20220701
  Transmission Date: 20221027
  Serious: Yes (Hospitalization, Other)
  Sender: FDA-Public Use
  Company Number: JP-TAIHO-AB220527_P_1

PATIENT
  Age: 7 Decade
  Sex: Female

DRUGS (3)
  1. ABRAXANE [Suspect]
     Active Substance: PACLITAXEL
     Indication: Pancreatic carcinoma metastatic
     Dosage: DETAILS NOT REPORTED, STARTED ON 18/DEC/YEAR X, CYCLE 2
     Route: 041
  2. GEMCITABINE HYDROCHLORIDE [Suspect]
     Active Substance: GEMCITABINE HYDROCHLORIDE
     Indication: Pancreatic carcinoma metastatic
     Dosage: DETAILS NOT REPORTED, STARTED ON 18/DEC/YEAR X, CYCLE 2
     Route: 041
  3. METRONIDAZOLE [Concomitant]
     Active Substance: METRONIDAZOLE
     Dosage: DETAILS NOT REPORTED, STARTED ON 01/FEB/YEAR X+1
     Route: 048

REACTIONS (3)
  - Neutrophil count decreased [Unknown]
  - Pneumocystis jirovecii pneumonia [Recovering/Resolving]
  - Clostridium test positive [Unknown]
